FAERS Safety Report 9649620 (Version 2)
Quarter: 2013Q4

REPORT INFORMATION
  Report Type: Report from Study
  Country: KR (occurrence: KR)
  Receive Date: 20131028
  Receipt Date: 20131028
  Transmission Date: 20140711
  Serious: Yes (Hospitalization)
  Sender: FDA-Public Use
  Company Number: KR-B.I. PHARMACEUTICALS,INC./RIDGEFIELD-2013-BI-10562BI

PATIENT
  Age: 66 Year
  Sex: Male
  Weight: 47.8 kg

DRUGS (4)
  1. ERLOTINIB [Suspect]
     Indication: SQUAMOUS CELL CARCINOMA OF LUNG
     Dosage: 150 MG
     Route: 048
     Dates: start: 20130321, end: 20130414
  2. ERLOTINIB [Suspect]
     Dosage: 100 MG
     Route: 048
     Dates: start: 20130423
  3. AMOSARTAN [Concomitant]
     Indication: HYPERTENSION
     Dosage: STRENGTH AND DAILY DOSE : 5/50MG
     Route: 048
     Dates: start: 2010
  4. NEURONTIN CAP [Concomitant]
     Indication: PARAESTHESIA
     Dosage: 900 MG
     Route: 048
     Dates: start: 20130321, end: 20130414

REACTIONS (12)
  - Vomiting [Recovered/Resolved]
  - Nausea [Recovered/Resolved]
  - Hypophagia [Recovered/Resolved]
  - Diarrhoea [Recovered/Resolved]
  - Dyspnoea [Recovered/Resolved]
  - Dizziness [Recovered/Resolved]
  - Abdominal pain upper [Recovered/Resolved]
  - Dehydration [Recovered/Resolved]
  - Azotaemia [Recovered/Resolved]
  - Skin lesion [Not Recovered/Not Resolved]
  - Acne [Not Recovered/Not Resolved]
  - Aspartate aminotransferase increased [Recovered/Resolved]
